FAERS Safety Report 10018222 (Version 2)
Quarter: 2014Q1

REPORT INFORMATION
  Report Type: Spontaneous
  Country: US (occurrence: US)
  Receive Date: 20140318
  Receipt Date: 20140318
  Transmission Date: 20141002
  Serious: No
  Sender: FDA-Public Use
  Company Number: US-BRISTOL-MYERS SQUIBB COMPANY-19412915

PATIENT
  Age: 69 Year
  Sex: Female

DRUGS (7)
  1. ERBITUX [Suspect]
     Indication: COLORECTAL CANCER METASTATIC
     Dosage: LAST DATE:13SEP13.
     Route: 042
     Dates: start: 20130826
  2. 5-FLUOROURACIL [Suspect]
     Indication: COLON CANCER
     Dosage: CI?DVP
  3. FOLINIC ACID [Suspect]
     Indication: COLON CANCER
  4. IRINOTECAN [Suspect]
     Indication: COLON CANCER
  5. BENADRYL [Concomitant]
     Indication: PREMEDICATION
  6. EMEND [Concomitant]
     Indication: PREMEDICATION
  7. DECADRON [Concomitant]
     Indication: PREMEDICATION

REACTIONS (1)
  - Infusion related reaction [Recovered/Resolved]
